FAERS Safety Report 15449871 (Version 1)
Quarter: 2018Q4

REPORT INFORMATION
  Report Type: Spontaneous
  Country: US (occurrence: US)
  Receive Date: 20181001
  Receipt Date: 20181001
  Transmission Date: 20190204
  Serious: Yes (Hospitalization)
  Sender: FDA-Public Use
  Company Number: US-ACCORD-072827

PATIENT
  Age: 55 Year
  Sex: Male
  Weight: 81.65 kg

DRUGS (1)
  1. HYDROCHLOROTHIAZIDE. [Suspect]
     Active Substance: HYDROCHLOROTHIAZIDE
     Indication: HYPERTENSION
     Dosage: STRENGTH: 12.5 MG
     Route: 048
     Dates: start: 20170610, end: 20180919

REACTIONS (2)
  - Fall [Unknown]
  - Transient ischaemic attack [Not Recovered/Not Resolved]
